FAERS Safety Report 8211458-4 (Version None)
Quarter: 2012Q1

REPORT INFORMATION
  Report Type: 
  Country: None (occurrence: None)
  Receive Date: 20120315
  Receipt Date: 20110921
  Transmission Date: 20120608
  Serious: Yes (Death, Hospitalization)
  Sender: FDA-Public Use
  Company Number: US-UCBSA-041758

PATIENT
  Age: 76 Year
  Sex: Male
  Weight: 68.9 kg

DRUGS (31)
  1. ROTIGOTINE [Suspect]
     Indication: PARKINSON'S DISEASE
     Route: 062
     Dates: start: 20090917, end: 20110906
  2. LUPRON [Concomitant]
     Indication: PSORIATIC ARTHROPATHY
     Dates: start: 20090101, end: 20100310
  3. SEROQUEL [Concomitant]
     Indication: DEMENTIA
     Dosage: ONCE AT BEDTIME
     Dates: start: 20091004, end: 20090101
  4. CORTISONE ACETATE [Concomitant]
     Indication: BACK PAIN
     Dosage: 1 INJECTION ONCE
     Dates: start: 20100301, end: 20100301
  5. NAMENDA [Concomitant]
     Dates: start: 20100420
  6. BOTOX [Concomitant]
     Dosage: Q3M
  7. EXTRA STRENGTH TYLENOL [Concomitant]
     Dosage: EXTRA STRENTH
  8. CEPHALEXIN [Concomitant]
     Indication: WOUND INFECTION
     Dosage: 500
     Route: 048
     Dates: start: 20100811, end: 20100826
  9. SINEMET [Concomitant]
     Dosage: 25/100, 1 1/2 TABLET
     Route: 048
     Dates: start: 20110601, end: 20110101
  10. ZOCOR [Concomitant]
     Indication: HYPERCHOLESTEROLAEMIA
     Dates: start: 19950101
  11. LAXATIVE [Concomitant]
     Indication: CONSTIPATION
  12. MIDODRINE HYDROCHLORIDE [Concomitant]
     Indication: ORTHOSTATIC HYPOTENSION
     Dates: start: 20090801, end: 20091001
  13. REQUIP [Concomitant]
     Dates: start: 20090918, end: 20090923
  14. NAMENDA [Concomitant]
     Dosage: 10 MG AT NIGHT AND 5 MG IN MORNING
     Dates: start: 20100412, end: 20100419
  15. LUPRON [Concomitant]
     Dates: start: 20090501, end: 20110906
  16. SINEMET [Concomitant]
     Indication: PARKINSON'S DISEASE
     Dosage: 25/100; Q 4
     Dates: start: 20021201
  17. ARICEPT [Concomitant]
     Indication: DEMENTIA
     Dates: start: 20060701
  18. AZILECT [Concomitant]
     Indication: PARKINSON'S DISEASE
     Dates: start: 20070701
  19. MIDODRINE HYDROCHLORIDE [Concomitant]
     Dates: start: 20091130
  20. NAMENDA [Concomitant]
     Dates: start: 20100405, end: 20100411
  21. LUPRON [Concomitant]
     Indication: PROSTATE CANCER
     Dates: start: 20090101, end: 20100310
  22. REQUIP [Concomitant]
     Dates: start: 20090924, end: 20090930
  23. FLORINEF [Concomitant]
     Dates: start: 20091001
  24. MIDODRINE HYDROCHLORIDE [Concomitant]
     Dates: start: 20091001, end: 20091130
  25. REQUIP [Concomitant]
     Indication: PARKINSON'S DISEASE
     Dates: start: 20090809, end: 20090916
  26. SANCTURA [Concomitant]
     Indication: NOCTURIA
     Dosage: DAILY DOSE: 60 MG ONCE AT BEDTIME
     Dates: start: 20100325
  27. LUPRON [Concomitant]
     Dates: start: 20090501, end: 20110906
  28. SINEMET [Concomitant]
     Dosage: 25/100; 1/2 TABLET AT 6 PM AND 1 1/2 TABLET AT 10 AM
     Route: 048
     Dates: start: 20110317, end: 20110601
  29. ASPIRIN [Concomitant]
     Indication: PROPHYLAXIS
     Dosage: 81
     Dates: start: 19990101
  30. NAMENDA [Concomitant]
     Indication: DEMENTIA
     Dates: start: 20100329, end: 20100404
  31. AZITHROMYCIN [Concomitant]
     Indication: INFECTION
     Route: 048
     Dates: start: 20110314, end: 20110324

REACTIONS (1)
  - DEATH [None]
